FAERS Safety Report 12310429 (Version 2)
Quarter: 2016Q2

REPORT INFORMATION
  Report Type: Spontaneous
  Country: FR (occurrence: FR)
  Receive Date: 20160427
  Receipt Date: 20160517
  Transmission Date: 20160815
  Serious: Yes (Hospitalization)
  Sender: FDA-Public Use
  Company Number: FR-PFIZER INC-2016224985

PATIENT
  Age: 37 Year
  Sex: Male

DRUGS (1)
  1. RHINADVIL [Suspect]
     Active Substance: IBUPROFEN\PSEUDOEPHEDRINE HYDROCHLORIDE
     Indication: NASOPHARYNGITIS
     Dosage: 1 DF, SINGLE
     Route: 048
     Dates: start: 20160410, end: 20160410

REACTIONS (4)
  - Pyrexia [Recovered/Resolved]
  - Leukocytosis [Unknown]
  - Acute generalised exanthematous pustulosis [Unknown]
  - Rash scarlatiniform [Unknown]

NARRATIVE: CASE EVENT DATE: 20160411
